FAERS Safety Report 6009113-4 (Version None)
Quarter: 2008Q4

REPORT INFORMATION
  Report Type: 
  Country: None (occurrence: None)
  Receive Date: 20081216
  Receipt Date: 20081202
  Transmission Date: 20090506
  Serious: Yes (Life-Threatening)
  Sender: FDA-Public Use
  Company Number: MSTR-NO-0806S-0028

PATIENT
  Age: 89 Year
  Sex: Male
  Weight: 58.7 kg

DRUGS (1)
  1. METASTRON [Suspect]
     Indication: METASTATIC PAIN
     Dosage: 141 MBQ, SINGLE DOSE, I.V.
     Route: 042
     Dates: start: 20080513, end: 20080513

REACTIONS (10)
  - ANAEMIA [None]
  - BLOOD PRESSURE DECREASED [None]
  - CONCOMITANT DISEASE AGGRAVATED [None]
  - DEPRESSED LEVEL OF CONSCIOUSNESS [None]
  - DYSPNOEA [None]
  - GASTROINTESTINAL HAEMORRHAGE [None]
  - PLATELET COUNT DECREASED [None]
  - PNEUMONIA [None]
  - PYREXIA [None]
  - WHITE BLOOD CELL COUNT DECREASED [None]
